FAERS Safety Report 8342047-9 (Version None)
Quarter: 2012Q2

REPORT INFORMATION
  Report Type: 
  Country: None (occurrence: None)
  Receive Date: 20120507
  Receipt Date: 20120424
  Transmission Date: 20120825
  Serious: Yes (Other)
  Sender: FDA-Public Use
  Company Number: US-ROCHE-1036623

PATIENT
  Sex: Male
  Weight: 97.61 kg

DRUGS (2)
  1. ACCUTANE [Suspect]
     Indication: ACNE
     Dates: start: 19830101
  2. ACCUTANE [Suspect]
     Dates: start: 19900101

REACTIONS (3)
  - INJURY [None]
  - DEPRESSION [None]
  - COLITIS ULCERATIVE [None]
